FAERS Safety Report 4747753-0 (Version None)
Quarter: 2005Q3

REPORT INFORMATION
  Report Type: 
  Country: None (occurrence: None)
  Receive Date: 20050816
  Receipt Date: 20050802
  Transmission Date: 20060218
  Serious: Yes (Other)
  Sender: FDA-Public Use
  Company Number: T05-CAN-02775-01

PATIENT
  Age: 63 Year
  Sex: Male

DRUGS (4)
  1. CELEXA [Suspect]
     Indication: DEPRESSION
     Dosage: 40 MG QD PO
     Route: 048
  2. ASPIRIN 10GR TIMED DISINTEGRATION TAB [Concomitant]
  3. MONOCOR (BISOPROLOL FUMARATE) [Concomitant]
  4. CRESTOR [Concomitant]

REACTIONS (4)
  - APHASIA [None]
  - LOSS OF CONSCIOUSNESS [None]
  - PARAESTHESIA [None]
  - SPEECH DISORDER [None]
